FAERS Safety Report 6010256-X (Version None)
Quarter: 2008Q4

REPORT INFORMATION
  Report Type: 
  Country: None (occurrence: None)
  Receive Date: 20081218
  Receipt Date: 20080305
  Transmission Date: 20090506
  Serious: No
  Sender: FDA-Public Use
  Company Number: A0713543A

PATIENT

DRUGS (2)
  1. FLONASE [Suspect]
  2. VERAMYST [Suspect]

REACTIONS (1)
  - ACNE [None]
